FAERS Safety Report 11099822 (Version 1)
Quarter: 2015Q2

REPORT INFORMATION
  Report Type: Spontaneous
  Country: DZ (occurrence: DZ)
  Receive Date: 20150508
  Receipt Date: 20150508
  Transmission Date: 20150821
  Serious: Yes (Other)
  Sender: FDA-Public Use
  Company Number: DZ-PFIZER INC-2015154972

PATIENT
  Age: 35 Year
  Sex: Female

DRUGS (3)
  1. SUTENT [Suspect]
     Active Substance: SUNITINIB MALATE
     Dosage: 37.5 MG
  2. SUTENT [Suspect]
     Active Substance: SUNITINIB MALATE
     Dosage: 50 MG, 1X/DAY (4WEEKS ON/2WEEKS OFF)
     Dates: start: 20131210
  3. SUTENT [Suspect]
     Active Substance: SUNITINIB MALATE
     Dosage: 37.5 MG

REACTIONS (18)
  - Helicobacter gastritis [Unknown]
  - Purulent discharge [Unknown]
  - Oral candidiasis [Unknown]
  - Hyperthyroidism [Unknown]
  - Epistaxis [Unknown]
  - Abdominal pain upper [Unknown]
  - Hypertension [Unknown]
  - Thrombocytopenia [Recovered/Resolved]
  - Palpitations [Unknown]
  - Bone pain [Unknown]
  - Swelling face [Unknown]
  - Yellow skin [Unknown]
  - Mucosal inflammation [Unknown]
  - Asthenia [Unknown]
  - Hypothyroidism [Recovered/Resolved]
  - Haematemesis [Unknown]
  - Melaena [Unknown]
  - Oral herpes [Unknown]

NARRATIVE: CASE EVENT DATE: 201411
